FAERS Safety Report 12043640 (Version 1)
Quarter: 2016Q1

REPORT INFORMATION
  Report Type: Spontaneous
  Country: US (occurrence: US)
  Receive Date: 20160208
  Receipt Date: 20160208
  Transmission Date: 20160526
  Serious: No
  Sender: FDA-Public Use
  Company Number: US-BIOGEN-2015BI054192

PATIENT
  Age: 30 Year
  Sex: Male

DRUGS (1)
  1. PLEGRIDY [Suspect]
     Active Substance: PEGINTERFERON BETA-1A
     Indication: MULTIPLE SCLEROSIS
     Route: 065
     Dates: start: 20150416, end: 201505

REACTIONS (7)
  - Loss of control of legs [Recovered/Resolved with Sequelae]
  - Road traffic accident [Recovered/Resolved]
  - Tremor [Recovered/Resolved with Sequelae]
  - Muscle spasms [Recovered/Resolved with Sequelae]
  - Chills [Recovered/Resolved with Sequelae]
  - Musculoskeletal pain [Recovered/Resolved with Sequelae]
  - Emotional distress [Recovered/Resolved with Sequelae]

NARRATIVE: CASE EVENT DATE: 201503
